FAERS Safety Report 6035164-X (Version None)
Quarter: 2009Q1

REPORT INFORMATION
  Report Type: 
  Country: None (occurrence: None)
  Receive Date: 20090112
  Receipt Date: 20090102
  Transmission Date: 20090719
  Serious: Yes (Hospitalization)
  Sender: FDA-Public Use
  Company Number: US-ROXANE LABORATORIES, INC.-2009-RO-00003RO

PATIENT
  Age: 59 Year
  Sex: Female
  Weight: 98 kg

DRUGS (19)
  1. METHOTREXATE [Suspect]
     Indication: PSORIASIS
     Dosage: 2.5MG
     Route: 048
  2. FUROSEMIDE [Suspect]
  3. AMLODIPINE [Suspect]
  4. METFORMIN HCL [Suspect]
  5. TICLOPIDINE HCL [Suspect]
  6. FEXOFENADINE [Suspect]
  7. COLCHICINE [Suspect]
  8. OLMESARTAN MEDOXOMIL [Suspect]
  9. SPIRONOLACTONE [Suspect]
  10. CARVEDILOL [Suspect]
  11. CETIRIZINE HCL [Suspect]
  12. METOLAZONE [Suspect]
  13. LISINOPRIL [Suspect]
  14. DOCUSATE SODIUM [Suspect]
  15. IBUPROFEN [Suspect]
     Indication: MOUTH ULCERATION
  16. LEUCOVORIN CALCIUM [Concomitant]
     Indication: SUPPORTIVE CARE
     Route: 042
  17. LEUCOVORIN CALCIUM [Concomitant]
     Dosage: 15MG
     Route: 042
  18. LEUCOVORIN CALCIUM [Concomitant]
     Dosage: 15MG
     Route: 048
  19. CEFAZOLIN [Concomitant]
     Indication: SUPPORTIVE CARE
     Route: 042

REACTIONS (4)
  - ABDOMINAL PAIN UPPER [None]
  - DRUG TOXICITY [None]
  - INCORRECT DRUG ADMINISTRATION RATE [None]
  - RENAL FAILURE ACUTE [None]
